FAERS Safety Report 18286401 (Version 2)
Quarter: 2020Q4

REPORT INFORMATION
  Report Type: Report from Study
  Country: CO (occurrence: CO)
  Receive Date: 20200920
  Receipt Date: 20201103
  Transmission Date: 20210113
  Serious: Yes (Other)
  Sender: FDA-Public Use
  Company Number: NVSC2020CO254010

PATIENT
  Sex: Male
  Weight: 120 kg

DRUGS (9)
  1. SANDOSTATIN LAR DEPOT [Suspect]
     Active Substance: OCTREOTIDE ACETATE
     Indication: ACROMEGALY
     Dosage: 20 MG, QMO (STARTED FROM 2 YEARS AGO)
     Route: 030
     Dates: end: 202008
  2. SANDOSTATIN LAR DEPOT [Suspect]
     Active Substance: OCTREOTIDE ACETATE
  3. SANDOSTATIN LAR DEPOT [Suspect]
     Active Substance: OCTREOTIDE ACETATE
     Dosage: UNK (SANDOSTATIN LAR EVERY 6 WEEKS)
     Route: 065
  4. LANTUS [Concomitant]
     Active Substance: INSULIN GLARGINE
     Indication: DIABETES MELLITUS
     Dosage: 42 IU, QD (STARTED FROM 4 YEARS AGO)
     Route: 058
  5. LOVASTATIN. [Concomitant]
     Active Substance: LOVASTATIN
     Indication: PRODUCT USED FOR UNKNOWN INDICATION
     Dosage: 40 MG, QD (STARTED 5 YEARS AGO)
     Route: 048
  6. AMLODIPINE [Concomitant]
     Active Substance: AMLODIPINE BESYLATE
     Indication: PRODUCT USED FOR UNKNOWN INDICATION
     Dosage: 10 MG, QD (STARTED FROM 5 YEARS AGO)
     Route: 048
  7. INSULIN GLARGINE [Concomitant]
     Active Substance: INSULIN GLARGINE
     Indication: DIABETES MELLITUS
     Dosage: 10 IU (BEFORE EVERY MEALS) (STARTED FROM 4 YEARS AGO)
     Route: 058
  8. METFORMIN [Suspect]
     Active Substance: METFORMIN HYDROCHLORIDE
     Indication: DIABETES MELLITUS
     Dosage: UNK, Q12H (STARTED FROM 1 YEAR AGO)
     Route: 048
  9. LOSARTAN. [Suspect]
     Active Substance: LOSARTAN
     Indication: HYPERTENSION
     Dosage: 100 MG, QD (STARTED FROM 5 YEARS AGO)
     Route: 048

REACTIONS (8)
  - Pain [Unknown]
  - Peripheral swelling [Not Recovered/Not Resolved]
  - Skin atrophy [Unknown]
  - Varicose vein ruptured [Unknown]
  - Illness [Unknown]
  - Injury [Unknown]
  - Burning sensation [Unknown]
  - Inappropriate schedule of product administration [Unknown]
